FAERS Safety Report 8662791 (Version 2)
Quarter: 2012Q4

REPORT INFORMATION
  Report Type: 
  Country: DK (occurrence: CA)
  Receive Date: 20120712
  Receipt Date: 20120919
  Transmission Date: 20130627
  Serious: Yes (Disabling, Other)
  Sender: FDA-Public Use
  Company Number: CA-FRI-1000036969

PATIENT
  Age: 20 Year
  Sex: Female
  Weight: 50 kg

DRUGS (6)
  1. CELEXA [Suspect]
     Dosage: 20 mg
     Route: 048
  2. CELEXA [Suspect]
     Dosage: 60 mg
     Route: 048
     Dates: end: 201110
  3. CELEXA [Suspect]
     Dosage: 40 mg
     Route: 048
     Dates: start: 201110, end: 201110
  4. CELEXA [Suspect]
     Dosage: 35 mg
     Route: 048
     Dates: start: 201110, end: 201110
  5. CELEXA [Suspect]
     Dosage: 20 mg
     Route: 048
     Dates: start: 201110
  6. RIVOTRIL [Concomitant]

REACTIONS (3)
  - Convulsion [Unknown]
  - Intentional self-injury [Unknown]
  - Aggression [Unknown]
